FAERS Safety Report 16729065 (Version 1)
Quarter: 2019Q4

REPORT INFORMATION
  Report Type: Spontaneous
  Country: US (occurrence: US)
  Receive Date: 20190821
  Receipt Date: 20190821
  Transmission Date: 20200122
  Serious: Yes (Hospitalization)
  Sender: FDA-Public Use
  Company Number: None

PATIENT
  Age: 57 Year
  Sex: Male
  Weight: 112.5 kg

DRUGS (2)
  1. MED #2: ALLOPURINOL 100MG (GENERIC FOR ZYLOPRIM) [Suspect]
     Active Substance: ALLOPURINOL
     Indication: GOUT
     Dosage: ?          QUANTITY:1 TABLET(S);OTHER ROUTE:MOUTH?
  2. COLCRYS [Suspect]
     Active Substance: COLCHICINE
     Indication: GOUT
     Dosage: ?          QUANTITY:1 TABLET(S);OTHER ROUTE:MOUTH?

REACTIONS (5)
  - Hepatic enzyme increased [None]
  - Nausea [None]
  - Hypersensitivity [None]
  - Pyrexia [None]
  - Blood creatine increased [None]

NARRATIVE: CASE EVENT DATE: 20190713
